FAERS Safety Report 4794537-3 (Version None)
Quarter: 2005Q4

REPORT INFORMATION
  Report Type: 
  Country: None (occurrence: None)
  Receive Date: 20051011
  Receipt Date: 20050926
  Transmission Date: 20060501
  Serious: Yes (Other)
  Sender: FDA-Public Use
  Company Number: US-AMGEN-KDL148627

PATIENT
  Sex: Male
  Weight: 127.1 kg

DRUGS (8)
  1. PROCRIT [Suspect]
     Indication: RENAL FAILURE CHRONIC
     Route: 058
     Dates: start: 20050201, end: 20050825
  2. RAPAMUNE [Concomitant]
     Dates: start: 20050422
  3. PROGRAF [Concomitant]
     Dates: start: 20050209
  4. PREDNISONE [Concomitant]
  5. VALCYTET [Concomitant]
  6. LASIX [Concomitant]
  7. LOPRESSOR [Concomitant]
  8. MYCOPHENOLATE MOFETIL [Concomitant]
     Dates: start: 20050209, end: 20050422

REACTIONS (3)
  - BONE MARROW FAILURE [None]
  - RETICULOCYTOPENIA [None]
  - THERAPEUTIC RESPONSE DECREASED [None]
